FAERS Safety Report 11889731 (Version 1)
Quarter: 2016Q1

REPORT INFORMATION
  Report Type: Report from Study
  Country: BR (occurrence: BR)
  Receive Date: 20160105
  Receipt Date: 20160105
  Transmission Date: 20160526
  Serious: Yes (Other)
  Sender: FDA-Public Use
  Company Number: PHHY2015BR170218

PATIENT
  Sex: Female
  Weight: 80 kg

DRUGS (1)
  1. NEOTIAPIM [Suspect]
     Active Substance: QUETIAPINE
     Indication: SLEEP DISORDER
     Dosage: 50 MG, BID
     Route: 065

REACTIONS (6)
  - Off label use [Unknown]
  - Mastication disorder [Unknown]
  - Walking disability [Unknown]
  - General physical health deterioration [Unknown]
  - Drug ineffective [Unknown]
  - Glaucoma [Unknown]
